FAERS Safety Report 24686859 (Version 1)
Quarter: 2024Q4

REPORT INFORMATION
  Report Type: Spontaneous
  Country: US (occurrence: US)
  Receive Date: 20241202
  Receipt Date: 20241202
  Transmission Date: 20250115
  Serious: Yes (Hospitalization)
  Sender: MYLAN
  Company Number: US-MYLANLABS-2024M1106699

PATIENT
  Age: 10 Year
  Sex: Female

DRUGS (35)
  1. PREDNISOLONE [Suspect]
     Active Substance: PREDNISOLONE
     Indication: Infective pulmonary exacerbation of cystic fibrosis
     Dosage: 2 MILLIGRAM/KILOGRAM, QD
     Route: 048
  2. VANCOMYCIN [Suspect]
     Active Substance: VANCOMYCIN
     Indication: Pseudomonas infection
     Dosage: 21 MILLIGRAM/KILOGRAM, Q6H, OVER 2H
     Route: 042
  3. VANCOMYCIN [Suspect]
     Active Substance: VANCOMYCIN
     Indication: Staphylococcal infection
  4. VANCOMYCIN [Suspect]
     Active Substance: VANCOMYCIN
     Indication: Stenotrophomonas infection
  5. SODIUM CHLORIDE [Suspect]
     Active Substance: SODIUM CHLORIDE
     Indication: Product used for unknown indication
     Dosage: UNK
     Route: 065
  6. AZTREONAM [Suspect]
     Active Substance: AZTREONAM
     Indication: Pseudomonas infection
     Dosage: 75 MILLIGRAM/KILOGRAM, Q6H, OVER 30MIN
     Route: 042
  7. AZTREONAM [Suspect]
     Active Substance: AZTREONAM
     Indication: Staphylococcal infection
  8. AZTREONAM [Suspect]
     Active Substance: AZTREONAM
     Indication: Stenotrophomonas infection
  9. AVIBACTAM SODIUM\CEFTAZIDIME [Suspect]
     Active Substance: AVIBACTAM SODIUM\CEFTAZIDIME
     Indication: Pseudomonas infection
     Dosage: 50 MILLIGRAM/KILOGRAM, Q8H, OVER 2H
     Route: 042
  10. AVIBACTAM SODIUM\CEFTAZIDIME [Suspect]
     Active Substance: AVIBACTAM SODIUM\CEFTAZIDIME
     Indication: Staphylococcal infection
  11. AVIBACTAM SODIUM\CEFTAZIDIME [Suspect]
     Active Substance: AVIBACTAM SODIUM\CEFTAZIDIME
     Indication: Stenotrophomonas infection
  12. ALBUTEROL [Concomitant]
     Active Substance: ALBUTEROL
     Indication: Cough
     Dosage: UNK
     Route: 065
  13. DORNASE ALFA [Concomitant]
     Active Substance: DORNASE ALFA
     Indication: Cystic fibrosis
     Dosage: UNK
     Route: 065
  14. ACETYLCYSTEINE [Concomitant]
     Active Substance: ACETYLCYSTEINE
     Indication: Productive cough
     Dosage: UNK, NEBULISED
     Route: 055
  15. TOBRAMYCIN [Concomitant]
     Active Substance: TOBRAMYCIN\TOBRAMYCIN SULFATE
     Indication: Staphylococcal infection
     Dosage: UNK, ALTERNATED EVERY OTHER MONTH VANCOMYCIN
     Route: 055
  16. TOBRAMYCIN [Concomitant]
     Active Substance: TOBRAMYCIN\TOBRAMYCIN SULFATE
     Indication: Pseudomonas infection
  17. TOBRAMYCIN [Concomitant]
     Active Substance: TOBRAMYCIN\TOBRAMYCIN SULFATE
     Indication: Stenotrophomonas infection
  18. TOBRAMYCIN [Concomitant]
     Active Substance: TOBRAMYCIN\TOBRAMYCIN SULFATE
     Indication: Staphylococcal infection
     Dosage: UNK, FOR 19 TO 24 DAYS
     Route: 042
  19. TOBRAMYCIN [Concomitant]
     Active Substance: TOBRAMYCIN\TOBRAMYCIN SULFATE
     Indication: Pseudomonas infection
     Dosage: UNK, THERAPY COMPLETED
     Route: 042
  20. TOBRAMYCIN [Concomitant]
     Active Substance: TOBRAMYCIN\TOBRAMYCIN SULFATE
     Indication: Stenotrophomonas infection
  21. LEVOFLOXACIN [Concomitant]
     Active Substance: LEVOFLOXACIN
     Indication: Staphylococcal infection
     Dosage: UNK, FOR 19 TO 24 DAYS
     Route: 042
  22. LEVOFLOXACIN [Concomitant]
     Active Substance: LEVOFLOXACIN
     Indication: Pseudomonas infection
     Dosage: UNK, THERAPY COMPLETED
     Route: 042
  23. LEVOFLOXACIN [Concomitant]
     Active Substance: LEVOFLOXACIN
     Indication: Stenotrophomonas infection
  24. LINEZOLID [Concomitant]
     Active Substance: LINEZOLID
     Indication: Staphylococcal infection
     Dosage: UNK
     Route: 048
  25. LINEZOLID [Concomitant]
     Active Substance: LINEZOLID
     Indication: Pseudomonas infection
  26. LINEZOLID [Concomitant]
     Active Substance: LINEZOLID
     Indication: Stenotrophomonas infection
  27. MINOCYCLINE [Concomitant]
     Active Substance: MINOCYCLINE HYDROCHLORIDE
     Indication: Staphylococcal infection
     Dosage: UNK
     Route: 048
  28. MINOCYCLINE [Concomitant]
     Active Substance: MINOCYCLINE HYDROCHLORIDE
     Indication: Pseudomonas infection
  29. MINOCYCLINE [Concomitant]
     Active Substance: MINOCYCLINE HYDROCHLORIDE
     Indication: Stenotrophomonas infection
  30. VANCOMYCIN [Concomitant]
     Active Substance: VANCOMYCIN
     Indication: Staphylococcal infection
     Dosage: UNK, ALTERNATED EVERY OTHER MONTH TOBRAMYCIN
     Route: 055
  31. VANCOMYCIN [Concomitant]
     Active Substance: VANCOMYCIN
     Indication: Pseudomonas infection
  32. VANCOMYCIN [Concomitant]
     Active Substance: VANCOMYCIN
     Indication: Stenotrophomonas infection
  33. VANCOMYCIN [Concomitant]
     Active Substance: VANCOMYCIN
     Indication: Staphylococcal infection
     Dosage: UNK, FOR 19 TO 24 DAYS
     Route: 042
  34. VANCOMYCIN [Concomitant]
     Active Substance: VANCOMYCIN
     Indication: Pseudomonas infection
     Dosage: UNK, THERAPY COMPLETED
     Route: 042
  35. VANCOMYCIN [Concomitant]
     Active Substance: VANCOMYCIN
     Indication: Stenotrophomonas infection

REACTIONS (3)
  - Therapy non-responder [Unknown]
  - Transaminases increased [Unknown]
  - Drug intolerance [Unknown]
